FAERS Safety Report 5997169-4 (Version None)
Quarter: 2008Q4

REPORT INFORMATION
  Report Type: 
  Country: None (occurrence: None)
  Receive Date: 20081212
  Receipt Date: 20081105
  Transmission Date: 20090506
  Serious: No
  Sender: FDA-Public Use
  Company Number: US-ABBOTT-08P-163-0485643-00

PATIENT
  Sex: Female
  Weight: 104.42 kg

DRUGS (3)
  1. HUMIRA [Suspect]
     Indication: RHEUMATOID ARTHRITIS
     Route: 058
     Dates: start: 20071101
  2. HUMIRA [Suspect]
     Dosage: HUMIRA PRE-FILLED SYRINGE
  3. RISEDRONATE SODIUM [Concomitant]
     Indication: OSTEOPOROSIS
     Route: 048
     Dates: start: 20040101

REACTIONS (4)
  - DRUG DELIVERY SYSTEM MALFUNCTION [None]
  - DRUG DOSE OMISSION [None]
  - INCORRECT DOSE ADMINISTERED [None]
  - PAIN IN EXTREMITY [None]
